FAERS Safety Report 6227123-9 (Version None)
Quarter: 2009Q2

REPORT INFORMATION
  Report Type: 
  Country: None (occurrence: None)
  Receive Date: 20090612
  Receipt Date: 20090527
  Transmission Date: 20091009
  Serious: No
  Sender: FDA-Public Use
  Company Number: US-ABBOTT-09P-163-0575943-00

PATIENT
  Sex: Male
  Weight: 95.34 kg

DRUGS (8)
  1. HUMIRA [Suspect]
     Indication: PSORIASIS
     Route: 058
     Dates: start: 20080101
  2. SORIATANE [Concomitant]
     Indication: PSORIASIS
  3. QUINAPRIL [Concomitant]
     Indication: ELECTROCARDIOGRAM ABNORMAL
  4. AVINZA [Concomitant]
     Indication: PAIN
  5. VICODIN [Concomitant]
     Indication: PAIN
  6. FLOMAX [Concomitant]
     Indication: PROSTATOMEGALY
  7. AMBIEN [Concomitant]
     Indication: INSOMNIA
  8. ANDROGEL [Concomitant]
     Indication: BLOOD TESTOSTERONE DECREASED
     Route: 061

REACTIONS (1)
  - DRUG DOSE OMISSION [None]
